FAERS Safety Report 6198770-8 (Version None)
Quarter: 2009Q2

REPORT INFORMATION
  Report Type: 
  Country: None (occurrence: None)
  Receive Date: 20090521
  Receipt Date: 20090513
  Transmission Date: 20091009
  Serious: Yes (Hospitalization, Other)
  Sender: FDA-Public Use
  Company Number: US-MERCK-0704USA01590

PATIENT
  Age: 68 Year
  Sex: Female

DRUGS (2)
  1. FOSAMAX [Suspect]
     Indication: OSTEOPOROSIS
     Route: 048
     Dates: start: 20010828, end: 20050708
  2. FOSAMAX [Suspect]
     Indication: OSTEOPENIA
     Route: 048
     Dates: start: 20010828, end: 20050708

REACTIONS (12)
  - ABDOMINAL HERNIA [None]
  - ADVERSE DRUG REACTION [None]
  - ANXIETY [None]
  - CHEST PAIN [None]
  - CHOLECYSTITIS CHRONIC [None]
  - CHOLELITHIASIS [None]
  - DYSPNOEA [None]
  - MOUTH ULCERATION [None]
  - NAUSEA [None]
  - OSTEONECROSIS [None]
  - TINNITUS [None]
  - VOMITING [None]
